FAERS Safety Report 6759115-5 (Version None)
Quarter: 2010Q2

REPORT INFORMATION
  Report Type: 
  Country: None (occurrence: None)
  Receive Date: 20100607
  Receipt Date: 20100602
  Transmission Date: 20101027
  Serious: Yes (Other)
  Sender: FDA-Public Use
  Company Number: CHPA2010US09477

PATIENT
  Age: 89 Year
  Sex: Male
  Weight: 71.655 kg

DRUGS (2)
  1. BENEFIBER W/ WHEAT DEXTRIN (NCH) [Suspect]
     Indication: CONSTIPATION
     Dosage: 3 TSP (1 TABLESPOON), BID
     Route: 048
  2. MIRALAX [Concomitant]
     Indication: CONSTIPATION
     Dosage: UNK, UNK

REACTIONS (5)
  - INCORRECT DOSE ADMINISTERED [None]
  - NERVE COMPRESSION [None]
  - OFF LABEL USE [None]
  - SPINAL OPERATION [None]
  - THERAPEUTIC RESPONSE UNEXPECTED [None]
